FAERS Safety Report 17852182 (Version 1)
Quarter: 2020Q2

REPORT INFORMATION
  Report Type: Spontaneous
  Country: US (occurrence: US)
  Receive Date: 20200602
  Receipt Date: 20200602
  Transmission Date: 20200714
  Serious: Yes (Death, Other)
  Sender: FDA-Public Use
  Company Number: US-TEVA-2020-US-1242151

PATIENT
  Age: 22 Year
  Sex: Female

DRUGS (3)
  1. TETRACAINE. [Suspect]
     Active Substance: TETRACAINE
     Indication: PAIN IN EXTREMITY
     Route: 061
  2. TETRAHYDROCANNABINOL [Suspect]
     Active Substance: DRONABINOL
     Indication: PRODUCT USED FOR UNKNOWN INDICATION
     Route: 065
  3. LIDOCAINE. [Suspect]
     Active Substance: LIDOCAINE
     Indication: PAIN IN EXTREMITY
     Route: 061

REACTIONS (5)
  - Seizure [Fatal]
  - Intentional product misuse [Unknown]
  - Cardiac arrest [Fatal]
  - Toxicity to various agents [Unknown]
  - Brain injury [Fatal]
